FAERS Safety Report 21825623 (Version 3)
Quarter: 2023Q2

REPORT INFORMATION
  Report Type: Report from Study
  Country: JP (occurrence: JP)
  Receive Date: 20230105
  Receipt Date: 20230612
  Transmission Date: 20230722
  Serious: Yes (Death, Hospitalization, Other)
  Sender: FDA-Public Use
  Company Number: JP-SERVIER-S22013242

PATIENT
  Age: 76 Year
  Sex: Female

DRUGS (3)
  1. IVABRADINE [Suspect]
     Active Substance: IVABRADINE
     Indication: Cardiac failure chronic
     Dosage: 2.5 MG, Q12H
     Route: 048
     Dates: start: 20210922, end: 20220810
  2. BISOPROLOL FUMARATE [Concomitant]
     Active Substance: BISOPROLOL FUMARATE
     Indication: Cardiac failure chronic
     Dosage: 0.625 MG, EVERYDAY
     Route: 048
     Dates: end: 20220820
  3. PIMOBENDAN [Concomitant]
     Active Substance: PIMOBENDAN
     Indication: Product used for unknown indication
     Dosage: UNK
     Route: 065
     Dates: start: 20220405

REACTIONS (2)
  - Pulmonary arterial hypertension [Fatal]
  - SARS-CoV-2 test positive [Fatal]

NARRATIVE: CASE EVENT DATE: 20220208
